FAERS Safety Report 8557986-3 (Version None)
Quarter: 2012Q3

REPORT INFORMATION
  Report Type: 
  Country: None (occurrence: None)
  Receive Date: 20120801
  Receipt Date: 20120718
  Transmission Date: 20120928
  Serious: No
  Sender: FDA-Public Use
  Company Number: US-ASTRAZENECA-2012SE50580

PATIENT
  Sex: Female

DRUGS (1)
  1. NEXIUM [Suspect]
     Route: 048

REACTIONS (7)
  - CHEST DISCOMFORT [None]
  - DYSPHAGIA [None]
  - OESOPHAGITIS [None]
  - WEIGHT ABNORMAL [None]
  - INTENTIONAL DRUG MISUSE [None]
  - OFF LABEL USE [None]
  - FOOD ALLERGY [None]
